FAERS Safety Report 8846920 (Version 3)
Quarter: 2013Q1

REPORT INFORMATION
  Report Type: Spontaneous
  Country: US (occurrence: None)
  Receive Date: 20121016
  Receipt Date: 20121214
  Transmission Date: 20140127
  Serious: Yes (Other)
  Sender: FDA-Public Use
  Company Number: AUR-APL-2012-04367

PATIENT
  Age: 52 Year
  Sex: Male
  Weight: 94.35 kg

DRUGS (12)
  1. GABAPENTIN (GABAPENTIN) [Suspect]
     Indication: NEUROPATHY PERIPHERAL
     Dates: start: 2010
  2. TRAMADOL (TRAMADOL) [Suspect]
     Indication: MIGRAINE
  3. TAMSULOSIN HYDROCHLORIDE [Suspect]
     Indication: PROSTATOMEGALY
  4. ALCOHOL (ETHANOL) [Suspect]
     Indication: PRODUCT USED FOR UNKNOWN INDICATION
  5. NORVIR [Suspect]
     Indication: HIV INFECTION
     Dates: end: 2007
  6. ISENTRESS [Suspect]
     Indication: HIV INFECTION
     Dosage: 800 MG (400 MG, 2 IN 1 D)
     Dates: start: 20090818
  7. INTELENCE [Suspect]
     Indication: HIV INFECTION
     Dosage: 400 MG (100 MG, 4 IN 1 D), ORAL
     Route: 048
     Dates: start: 20090818
  8. FLOMAX (MORNIFLUMATE) [Suspect]
     Indication: PROSTATOMEGALY
  9. VICODIN [Suspect]
     Indication: PAIN IN EXTREMITY
     Dates: start: 2000
  10. IBUPROFEN (IBUPROFEN) [Concomitant]
  11. VALIUM (DIAZEPAM) [Concomitant]
  12. DIAZEPAM (DIAZEPAM) [Concomitant]

REACTIONS (11)
  - Neuropathy peripheral [None]
  - Hypersensitivity [None]
  - Alcohol use [None]
  - Urinary tract infection [None]
  - Prostatomegaly [None]
  - Erectile dysfunction [None]
  - Haematuria [None]
  - Drug ineffective [None]
  - Somnolence [None]
  - Lip blister [None]
  - Abdominal pain upper [None]
